FAERS Safety Report 4455796-X (Version None)
Quarter: 2004Q3

REPORT INFORMATION
  Report Type: 
  Country: None (occurrence: None)
  Receive Date: 20040920
  Receipt Date: 20040907
  Transmission Date: 20050211
  Serious: Yes (Other)
  Sender: FDA-Public Use
  Company Number: SUS1-2004-00406

PATIENT
  Age: 61 Year
  Sex: Female
  Weight: 61.2 kg

DRUGS (3)
  1. AGRYLIN [Suspect]
     Indication: THROMBOCYTOPENIA
     Dosage: 0.5 MG, FOUR CAPSULES DAILY,
     Dates: start: 20030101, end: 20040902
  2. LIPITOR [Concomitant]
  3. HYDREA [Concomitant]

REACTIONS (7)
  - HAEMATURIA [None]
  - HENOCH-SCHONLEIN PURPURA [None]
  - HYPERTENSION [None]
  - IDIOPATHIC CAPILLARITIS [None]
  - PHARMACEUTICAL PRODUCT COMPLAINT [None]
  - PROTEINURIA [None]
  - RASH [None]
